FAERS Safety Report 5866205-8 (Version None)
Quarter: 2008Q3

REPORT INFORMATION
  Report Type: 
  Country: None (occurrence: None)
  Receive Date: 20080829
  Receipt Date: 20080820
  Transmission Date: 20090109
  Serious: Yes (Other)
  Sender: FDA-Public Use
  Company Number: US-PFIZER INC-2008069842

PATIENT
  Sex: Female
  Weight: 60 kg

DRUGS (2)
  1. SOLU-MEDROL [Suspect]
     Indication: MULTIPLE SCLEROSIS
     Route: 042
  2. NATALIZUMAB [Suspect]
     Indication: GAIT DISTURBANCE

REACTIONS (3)
  - ALOPECIA [None]
  - URINARY TRACT INFECTION [None]
  - URTICARIA [None]
